FAERS Safety Report 11695118 (Version 3)
Quarter: 2016Q1

REPORT INFORMATION
  Report Type: Report from Study
  Country: DE (occurrence: DE)
  Receive Date: 20151103
  Receipt Date: 20160303
  Transmission Date: 20160525
  Serious: Yes (Hospitalization)
  Sender: FDA-Public Use
  Company Number: DE-ROCHE-1653393

PATIENT
  Age: 50 Year
  Sex: Female
  Weight: 86 kg

DRUGS (6)
  1. PERTUZUMAB [Suspect]
     Active Substance: PERTUZUMAB
     Indication: BREAST CANCER
     Dosage: LOADING DOSE
     Route: 042
     Dates: start: 20150831
  2. PACLITAXEL. [Suspect]
     Active Substance: PACLITAXEL
     Indication: BREAST CANCER
     Dosage: DATE OF LAST DOSE PRIOR TO FATIGUE : 09/NOV/2015?DATE OF LAST DOSE PRIOR TO ANGINA TONSILLARIS: 19/O
     Route: 042
     Dates: start: 20150831
  3. PERTUZUMAB [Suspect]
     Active Substance: PERTUZUMAB
     Dosage: DATE OF LAST DOSE PRIOR TO FATIGUE: 09/NOV/2015?DATE OF LAST DOSE PRIOR TO ANGINA TONSILLARIS: 12/OC
     Route: 042
  4. LIPOSOMAL ENCAPSULATED DOXORUBICIN [Suspect]
     Active Substance: DOXORUBICIN
     Indication: BREAST CANCER
     Dosage: DATE OF LAST DOSE PRIOR TO FATIGUE :09/NOV/2015?DATE OF LAST DOSE PRIOR TO ANGINA TONSILLARIS : 19/O
     Route: 042
     Dates: start: 20150831
  5. TRASTUZUMAB [Suspect]
     Active Substance: TRASTUZUMAB
     Dosage: DATE OF LAST DOSE PRIOR TO FATIGUE : 09/NOV/2015 DOSE :528 MG?DATE OF LAST DOSE PRIOR TO ANGINA TONS
     Route: 042
  6. TRASTUZUMAB [Suspect]
     Active Substance: TRASTUZUMAB
     Indication: BREAST CANCER
     Dosage: LOADING DOSE
     Route: 042
     Dates: start: 20150831

REACTIONS (2)
  - Tonsillitis [Recovered/Resolved]
  - Fatigue [Recovered/Resolved]

NARRATIVE: CASE EVENT DATE: 20151026
